FAERS Safety Report 8300992-4 (Version None)
Quarter: 2012Q2

REPORT INFORMATION
  Report Type: 
  Country: None (occurrence: None)
  Receive Date: 20120420
  Receipt Date: 20120412
  Transmission Date: 20120825
  Serious: Yes (Hospitalization)
  Sender: FDA-Public Use
  Company Number: TW-ABBOTT-12P-153-0925785-00

PATIENT
  Sex: Female

DRUGS (3)
  1. HUMIRA [Suspect]
     Indication: RHEUMATOID ARTHRITIS
     Route: 058
     Dates: start: 20111006, end: 20120216
  2. ULTRACET [Concomitant]
     Indication: PRODUCT USED FOR UNKNOWN INDICATION
  3. MIACALCIN [Concomitant]
     Indication: PRODUCT USED FOR UNKNOWN INDICATION
     Route: 055

REACTIONS (50)
  - CHILLS [None]
  - NAUSEA [None]
  - VOMITING [None]
  - DIZZINESS [None]
  - THROAT IRRITATION [None]
  - ABDOMINAL DISTENSION [None]
  - CONSTIPATION [None]
  - HEPATIC CALCIFICATION [None]
  - RENAL CYST [None]
  - HEADACHE [None]
  - BONE DENSITY DECREASED [None]
  - UNEVALUABLE EVENT [None]
  - GOUTY ARTHRITIS [None]
  - AORTIC ANEURYSM [None]
  - PYREXIA [None]
  - SENSATION OF FOREIGN BODY [None]
  - BACK PAIN [None]
  - JOINT RANGE OF MOTION DECREASED [None]
  - INTESTINAL POLYP [None]
  - AORTIC THROMBOSIS [None]
  - MYCOBACTERIAL INFECTION [None]
  - DYSPHONIA [None]
  - URINARY INCONTINENCE [None]
  - PSEUDOMONAS INFECTION [None]
  - GOITRE [None]
  - CHEST DISCOMFORT [None]
  - COUGH [None]
  - DYSURIA [None]
  - VOCAL CORD PARALYSIS [None]
  - INFLAMMATION [None]
  - COLONIC POLYP [None]
  - JOINT SWELLING [None]
  - ARTHRALGIA [None]
  - BRONCHIECTASIS [None]
  - PULMONARY TUBERCULOSIS [None]
  - DYSPNOEA [None]
  - CARDIAC MURMUR [None]
  - VITILIGO [None]
  - MONARTHRITIS [None]
  - HYPOAESTHESIA [None]
  - AORTIC CALCIFICATION [None]
  - SPONDYLOLISTHESIS [None]
  - GASTRITIS [None]
  - ABSCESS [None]
  - DEVICE RELATED INFECTION [None]
  - PRURITUS ALLERGIC [None]
  - PSORIASIS [None]
  - ARTHRITIS [None]
  - BACTERIAL TEST POSITIVE [None]
  - STENT-GRAFT ENDOLEAK [None]
